FAERS Safety Report 5561933-6 (Version None)
Quarter: 2007Q4

REPORT INFORMATION
  Report Type: 
  Country: None (occurrence: None)
  Receive Date: 20071215
  Receipt Date: 20071004
  Transmission Date: 20080405
  Serious: No
  Sender: FDA-Public Use
  Company Number: US-AMGEN-KDL246542

PATIENT
  Sex: Female

DRUGS (5)
  1. ENBREL [Suspect]
     Indication: PSORIATIC ARTHROPATHY
     Dates: start: 20070901
  2. NORVASC [Concomitant]
  3. UNSPECIFIED MEDICATION [Concomitant]
  4. FOLIC ACID [Concomitant]
  5. METHOTREXATE [Concomitant]

REACTIONS (5)
  - ABNORMAL SENSATION IN EYE [None]
  - HYPOAESTHESIA EYE [None]
  - INJECTION SITE PAIN [None]
  - VAGINITIS BACTERIAL [None]
  - VISION BLURRED [None]
